FAERS Safety Report 14812943 (Version 1)
Quarter: 2018Q2

REPORT INFORMATION
  Report Type: Spontaneous
  Country: FR (occurrence: FR)
  Receive Date: 20180426
  Receipt Date: 20180426
  Transmission Date: 20180711
  Serious: Yes (Other)
  Sender: FDA-Public Use
  Company Number: FR-MERCK KGAA-2046533

PATIENT
  Sex: Female

DRUGS (1)
  1. NOVOTHYROX [Suspect]
     Active Substance: LEVOTHYROXINE SODIUM
     Indication: PRODUCT USED FOR UNKNOWN INDICATION

REACTIONS (10)
  - Gait disturbance [None]
  - Fear [None]
  - Arthralgia [Recovering/Resolving]
  - Depression [None]
  - Decreased interest [None]
  - Vertigo [None]
  - Mood altered [None]
  - Blindness unilateral [None]
  - Anxiety [None]
  - Pain [Recovering/Resolving]
